FAERS Safety Report 12913358 (Version 1)
Quarter: 2016Q4

REPORT INFORMATION
  Report Type: Spontaneous
  Country: US (occurrence: US)
  Receive Date: 20161104
  Receipt Date: 20161104
  Transmission Date: 20170207
  Serious: No
  Sender: FDA-Public Use
  Company Number: US-APOTEX-2016AP012911

PATIENT
  Age: 69 Year
  Sex: Female

DRUGS (2)
  1. FLUTICASONE PROPIONATE. [Suspect]
     Active Substance: FLUTICASONE PROPIONATE
     Indication: HYPERSENSITIVITY
     Dosage: 1 METERED DOSE IN EACH NOSTRIL, ONCE A DAY
     Dates: end: 20160907
  2. FLUTICASONE PROPIONATE. [Suspect]
     Active Substance: FLUTICASONE PROPIONATE
     Indication: RHINORRHOEA

REACTIONS (2)
  - Pruritus [Recovering/Resolving]
  - Product substitution issue [Unknown]
